FAERS Safety Report 19434913 (Version 1)
Quarter: 2021Q2

REPORT INFORMATION
  Report Type: Other
  Country: US (occurrence: US)
  Receive Date: 20210617
  Receipt Date: 20210617
  Transmission Date: 20210717
  Serious: Yes (Other)
  Sender: FDA-Public Use
  Company Number: US-ROCHE-2847905

PATIENT
  Sex: Female

DRUGS (1)
  1. OCREVUS [Suspect]
     Active Substance: OCRELIZUMAB
     Indication: RELAPSING MULTIPLE SCLEROSIS
     Dosage: ONGOING YES ?DATE OF TREATMENT: 30/AUG/2019, 02/MAR/2020, 20/OCT/2020, 20/APR/2021
     Route: 065
     Dates: start: 20190228

REACTIONS (5)
  - Urinary tract infection [Not Recovered/Not Resolved]
  - Fall [Unknown]
  - Sepsis [Unknown]
  - Splinter [Unknown]
  - Localised infection [Recovered/Resolved]
